FAERS Safety Report 5741010-1 (Version None)
Quarter: 2008Q2

REPORT INFORMATION
  Report Type: 
  Country: None (occurrence: None)
  Receive Date: 20080516
  Receipt Date: 20071207
  Transmission Date: 20081010
  Serious: No
  Sender: FDA-Public Use
  Company Number: A0697960A

PATIENT
  Sex: Female

DRUGS (3)
  1. LANOXICAPS [Suspect]
     Dosage: .2MG PER DAY
     Route: 048
     Dates: start: 19970101
  2. BETAPACE [Concomitant]
  3. COUMADIN [Concomitant]

REACTIONS (1)
  - RASH [None]
